FAERS Safety Report 7007817-8 (Version None)
Quarter: 2010Q3

REPORT INFORMATION
  Report Type: 
  Country: None (occurrence: None)
  Receive Date: 20100922
  Receipt Date: 20100916
  Transmission Date: 20110219
  Serious: Yes (Other)
  Sender: FDA-Public Use
  Company Number: CA-MERCK-1009USA03711

PATIENT
  Age: 75 Year
  Sex: Female
  Weight: 54 kg

DRUGS (1)
  1. FOSAMAX PLUS D [Suspect]
     Route: 048

REACTIONS (6)
  - ASPIRATION [None]
  - DYSPHAGIA [None]
  - HYPOTONIA [None]
  - MUSCULAR WEAKNESS [None]
  - PHARYNGEAL DISORDER [None]
  - SENSORY LOSS [None]
